FAERS Safety Report 7718450-4 (Version None)
Quarter: 2011Q3

REPORT INFORMATION
  Report Type: 
  Country: None (occurrence: None)
  Receive Date: 20110830
  Receipt Date: 20110824
  Transmission Date: 20111222
  Serious: No
  Sender: FDA-Public Use
  Company Number: US-PFIZER INC-2008000876

PATIENT
  Sex: Female
  Weight: 59.09 kg

DRUGS (1)
  1. NARDIL [Suspect]
     Indication: DEPRESSION
     Route: 048
     Dates: start: 20071204, end: 20071223

REACTIONS (2)
  - UNEVALUABLE EVENT [None]
  - HEADACHE [None]
